FAERS Safety Report 7701012-2 (Version None)
Quarter: 2011Q3

REPORT INFORMATION
  Report Type: 
  Country: None (occurrence: None)
  Receive Date: 20110822
  Receipt Date: 20110810
  Transmission Date: 20111222
  Serious: Yes (Other)
  Sender: FDA-Public Use
  Company Number: DE-JNJFOC-20110509591

PATIENT
  Sex: Female
  Weight: 66 kg

DRUGS (6)
  1. LYRICA [Concomitant]
     Route: 065
  2. FENTANYL [Suspect]
     Indication: BACK PAIN
     Route: 062
  3. TAPENTADOL [Suspect]
     Indication: BACK PAIN
     Route: 065
     Dates: start: 20101207, end: 20101211
  4. NOVALGIN [Concomitant]
  5. LAXOBERAL [Concomitant]
  6. METOCLOPRAMIDE [Concomitant]

REACTIONS (8)
  - ASTHENIA [None]
  - HALLUCINATION [None]
  - SOMNOLENCE [None]
  - MALAISE [None]
  - DRY MOUTH [None]
  - WITHDRAWAL SYNDROME [None]
  - BACK PAIN [None]
  - MOTOR DYSFUNCTION [None]
